FAERS Safety Report 4634665-6 (Version None)
Quarter: 2005Q2

REPORT INFORMATION
  Report Type: 
  Country: None (occurrence: None)
  Receive Date: 20050411
  Receipt Date: 20050329
  Transmission Date: 20051028
  Serious: Yes (Hospitalization)
  Sender: FDA-Public Use
  Company Number: SUSI-2005-00273

PATIENT
  Age: 17 Year
  Sex: Male

DRUGS (1)
  1. PENTASA [Suspect]
     Indication: COLITIS ULCERATIVE
     Dosage: 500 MG, 1X/DAY:QD, ORAL
     Route: 048
     Dates: start: 20050301, end: 20050301

REACTIONS (1)
  - PANCREATITIS NECROTISING [None]
